FAERS Safety Report 8230473-8 (Version None)
Quarter: 2012Q1

REPORT INFORMATION
  Report Type: 
  Country: None (occurrence: None)
  Receive Date: 20120323
  Receipt Date: 20120315
  Transmission Date: 20120608
  Serious: Yes (Hospitalization)
  Sender: FDA-Public Use
  Company Number: US-BAYER-2011-112490

PATIENT
  Age: 37 Year
  Sex: Female
  Weight: 65.76 kg

DRUGS (14)
  1. XANAX [Concomitant]
     Indication: ANXIETY
     Dosage: UNK
     Route: 048
     Dates: start: 20030101
  2. YASMIN [Suspect]
     Indication: CONTRACEPTION
     Dosage: UNK
     Dates: start: 20070101, end: 20110101
  3. YAZ [Suspect]
     Indication: CONTRACEPTION
     Dosage: UNK
     Dates: start: 20070101, end: 20110101
  4. DROSPIRENONE AND ETHINYL ESTRADIOL [Suspect]
     Indication: CONTRACEPTION
     Dosage: UNK
     Dates: start: 20070101, end: 20110101
  5. DROSPIRENONE AND ETHINYL ESTRADIOL [Suspect]
     Dosage: UNK
     Dates: start: 20090101, end: 20110101
  6. BEYAZ [Suspect]
     Indication: CONTRACEPTION
     Dosage: UNK
     Dates: start: 20090101, end: 20110101
  7. JUICE PLUS [Concomitant]
     Dosage: UNK UNK, QD
     Route: 048
  8. ULTRAM [Concomitant]
     Dosage: UNK
     Route: 048
     Dates: start: 20110403
  9. TYLENOL [Concomitant]
     Dosage: UNK
     Route: 048
     Dates: start: 20110403
  10. ZOLOFT [Concomitant]
     Indication: DEPRESSION
     Dosage: UNK
     Route: 048
     Dates: start: 20000101
  11. YAZ [Suspect]
     Dosage: UNK
     Dates: start: 20090101, end: 20110101
  12. ZOLOFT [Concomitant]
     Dosage: UNK
     Dates: start: 20110403
  13. XANAX [Concomitant]
     Dosage: UNK
     Dates: start: 20110403
  14. IBUPROFEN AND DIPHENHYDRAMINE [Concomitant]
     Dosage: UNK
     Route: 048
     Dates: start: 20110403

REACTIONS (4)
  - PULMONARY EMBOLISM [None]
  - INJURY [None]
  - PLEURISY [None]
  - PAIN [None]
